FAERS Safety Report 5196477-7 (Version None)
Quarter: 2006Q4

REPORT INFORMATION
  Report Type: 
  Country: None (occurrence: None)
  Receive Date: 20061227
  Receipt Date: 20061214
  Transmission Date: 20070319
  Serious: Yes (Hospitalization)
  Sender: FDA-Public Use
  Company Number: 2006US002949

PATIENT
  Age: 44 Year
  Sex: Female

DRUGS (6)
  1. PROGRAF [Suspect]
     Indication: KIDNEY TRANSPLANT REJECTION
     Dosage: 2.5 MG, BID, ORAL
     Route: 048
     Dates: start: 20040414
  2. DACLIZUMAB (DACLIZUMAB) [Suspect]
     Indication: KIDNEY TRANSPLANT REJECTION
     Dosage: 2 MG/KG, (UID/QD), IV NOS
     Route: 042
     Dates: start: 20040414
  3. MYCOPHENOLATE MOFETIL [Suspect]
     Indication: KIDNEY TRANSPLANT REJECTION
     Dosage: 500 MG, BID, ORAL
     Route: 048
     Dates: start: 20040414
  4. PREDNISONE TAB [Suspect]
     Indication: KIDNEY TRANSPLANT REJECTION
     Dosage: 5 MG, UID/QD
     Dates: start: 20041009
  5. RAMIPRIL [Concomitant]
  6. SIMVASTATIN [Concomitant]

REACTIONS (6)
  - BLOOD CREATININE INCREASED [None]
  - CYSTITIS ESCHERICHIA [None]
  - FATIGUE [None]
  - IMMUNOSUPPRESSION [None]
  - LETHARGY [None]
  - PYELONEPHRITIS [None]
